FAERS Safety Report 6767839-9 (Version None)
Quarter: 2010Q2

REPORT INFORMATION
  Report Type: 
  Country: None (occurrence: None)
  Receive Date: 20100614
  Receipt Date: 20100602
  Transmission Date: 20101027
  Serious: Yes (Hospitalization, Other)
  Sender: FDA-Public Use
  Company Number: PHEH2010US03166

PATIENT
  Sex: Female

DRUGS (7)
  1. AFINITOR [Suspect]
     Indication: RENAL CELL CARCINOMA
     Dosage: 10 MG, DAILY
     Route: 048
     Dates: start: 20100219, end: 20100306
  2. PREDNISONE [Concomitant]
     Indication: IDIOPATHIC THROMBOCYTOPENIC PURPURA
     Dosage: 20 MG DAILY
     Route: 048
  3. MIRALAX [Concomitant]
  4. LASIX [Concomitant]
     Dosage: 40 MG DAILY
     Route: 048
  5. DOCUSATE [Concomitant]
     Dosage: 100 MG, BID
  6. SENNA [Concomitant]
     Dosage: 2 DF QPM
  7. SYNTHROID [Concomitant]
     Dosage: 125 UG QAM

REACTIONS (32)
  - ADNEXA UTERI CYST [None]
  - ANAEMIA [None]
  - ASCITES [None]
  - ASPIRATION PLEURAL CAVITY [None]
  - BLOOD CREATININE INCREASED [None]
  - BLOOD LACTATE DEHYDROGENASE INCREASED [None]
  - CHEST TUBE INSERTION [None]
  - COUGH [None]
  - DECREASED APPETITE [None]
  - DEEP VEIN THROMBOSIS [None]
  - DELIRIUM [None]
  - DYSPNOEA [None]
  - GASTROINTESTINAL DISORDER [None]
  - GENERAL PHYSICAL HEALTH DETERIORATION [None]
  - GENERALISED OEDEMA [None]
  - IDIOPATHIC THROMBOCYTOPENIC PURPURA [None]
  - METASTASES TO PLEURA [None]
  - METASTASIS [None]
  - METASTATIC PAIN [None]
  - MUSCULOSKELETAL CHEST PAIN [None]
  - NEPHRECTOMY [None]
  - OLIGURIA [None]
  - PAIN [None]
  - PLEURAL EFFUSION [None]
  - PLEURODESIS [None]
  - RENAL FAILURE ACUTE [None]
  - RENAL FAILURE CHRONIC [None]
  - RENAL IMPAIRMENT [None]
  - RENAL TUBULAR NECROSIS [None]
  - RHINORRHOEA [None]
  - THORACIC OPERATION [None]
  - THROMBOCYTOPENIA [None]
